FAERS Safety Report 13416967 (Version 4)
Quarter: 2017Q3

REPORT INFORMATION
  Report Type: Report from Study
  Country: None (occurrence: US)
  Receive Date: 20170406
  Receipt Date: 20170724
  Transmission Date: 20171127
  Serious: Yes (Hospitalization)
  Sender: FDA-Public Use
  Company Number: US-ABBVIE-17P-163-1925385-00

PATIENT
  Age: 63 Year
  Sex: Female
  Weight: 60 kg

DRUGS (21)
  1. HUMIRA [Suspect]
     Active Substance: ADALIMUMAB
     Indication: COLITIS ULCERATIVE
     Route: 058
     Dates: start: 20140110
  2. VEDOLIZUMAB [Concomitant]
     Active Substance: VEDOLIZUMAB
     Route: 042
     Dates: start: 20161108
  3. DILTIAZEM. [Concomitant]
     Active Substance: DILTIAZEM
     Indication: HYPERTENSION
     Route: 048
     Dates: start: 20140814, end: 20160411
  4. DILTIAZEM. [Concomitant]
     Active Substance: DILTIAZEM
     Route: 048
     Dates: start: 20160411
  5. PREDNISONE. [Concomitant]
     Active Substance: PREDNISONE
     Route: 048
     Dates: start: 20170207
  6. FOLIC ACID. [Concomitant]
     Active Substance: FOLIC ACID
     Indication: VITAMIN SUPPLEMENTATION
     Route: 048
     Dates: start: 20160105
  7. FLUTICASONE. [Concomitant]
     Active Substance: FLUTICASONE
     Indication: HYPERSENSITIVITY
     Route: 045
     Dates: start: 20160627
  8. LOPRESSOR [Concomitant]
     Active Substance: METOPROLOL TARTRATE
     Indication: HYPERTENSION
     Route: 048
     Dates: start: 20170214
  9. MAXITROL [Concomitant]
     Active Substance: DEXAMETHASONE\NEOMYCIN SULFATE\POLYMYXIN B SULFATE
     Indication: EYE INFLAMMATION
     Route: 047
     Dates: start: 201702
  10. CALCIUM-MAGNESIUM [Concomitant]
     Active Substance: CALCIUM\MAGNESIUM
     Indication: MINERAL SUPPLEMENTATION
     Route: 048
     Dates: start: 2014
  11. PREDNISONE. [Concomitant]
     Active Substance: PREDNISONE
     Indication: COLITIS ULCERATIVE
     Route: 048
     Dates: start: 20150116, end: 20160525
  12. PREDNISONE. [Concomitant]
     Active Substance: PREDNISONE
     Route: 048
     Dates: start: 20160325, end: 20161101
  13. PREDNISONE. [Concomitant]
     Active Substance: PREDNISONE
     Route: 048
     Dates: start: 20161101, end: 20170206
  14. VALACYCLOVIR [Concomitant]
     Active Substance: VALACYCLOVIR HYDROCHLORIDE
     Indication: HERPES SIMPLEX
     Route: 048
     Dates: start: 20130429
  15. VITAMIN D3 [Concomitant]
     Active Substance: CHOLECALCIFEROL
     Indication: VITAMIN SUPPLEMENTATION
     Route: 048
     Dates: start: 20160420
  16. VITAMIN B12 [Concomitant]
     Active Substance: CYANOCOBALAMIN
     Indication: VITAMIN SUPPLEMENTATION
     Route: 048
     Dates: start: 20160126
  17. HUMIRA [Suspect]
     Active Substance: ADALIMUMAB
     Route: 058
     Dates: start: 201507, end: 20160413
  18. BUDESONIDE FORMOTEROL [Concomitant]
     Active Substance: BUDESONIDE
     Indication: ASTHMA
     Route: 055
     Dates: start: 20130820
  19. ASPIRIN. [Concomitant]
     Active Substance: ASPIRIN
     Indication: CARDIOVASCULAR EVENT PROPHYLAXIS
     Route: 048
     Dates: start: 20080318
  20. VITAMIN E [Concomitant]
     Active Substance: .ALPHA.-TOCOPHEROL
     Indication: VITAMIN SUPPLEMENTATION
     Route: 048
     Dates: start: 20160726
  21. VEDOLIZUMAB [Concomitant]
     Active Substance: VEDOLIZUMAB
     Indication: COLITIS ULCERATIVE
     Route: 042
     Dates: start: 20160426, end: 20161101

REACTIONS (2)
  - Leukocytosis [Recovered/Resolved]
  - Enterococcal bacteraemia [Recovered/Resolved]

NARRATIVE: CASE EVENT DATE: 20170225
